FAERS Safety Report 8669481 (Version 4)
Quarter: 2012Q4

REPORT INFORMATION
  Report Type: 
  Country: US (occurrence: US)
  Receive Date: 20120718
  Receipt Date: 20121004
  Transmission Date: 20130627
  Serious: Yes (Hospitalization)
  Sender: FDA-Public Use
  Company Number: US-BIOGENIDEC-2012BI024710

PATIENT
  Age: 44 Year
  Sex: Male

DRUGS (1)
  1. AVONEX [Suspect]
     Indication: MULTIPLE SCLEROSIS
     Route: 030
     Dates: start: 20120216

REACTIONS (12)
  - Shoulder operation [Recovered/Resolved]
  - Exostosis [Not Recovered/Not Resolved]
  - Rotator cuff syndrome [Not Recovered/Not Resolved]
  - Migraine [Unknown]
  - Hypersomnia [Not Recovered/Not Resolved]
  - Incision site infection [Not Recovered/Not Resolved]
  - Purulent discharge [Unknown]
  - Rotator cuff repair [Unknown]
  - Influenza like illness [Recovered/Resolved]
  - Asthenia [Not Recovered/Not Resolved]
  - Pyrexia [Recovered/Resolved]
  - Depression [Unknown]
